FAERS Safety Report 11291399 (Version 1)
Quarter: 2015Q3

REPORT INFORMATION
  Report Type: Spontaneous
  Country: GB (occurrence: GB)
  Receive Date: 20150722
  Receipt Date: 20150722
  Transmission Date: 20151125
  Serious: Yes (Other)
  Sender: FDA-Public Use
  Company Number: GB-TEVA-578506ACC

PATIENT
  Age: 60 Year
  Sex: Male
  Weight: 122 kg

DRUGS (13)
  1. CLARITHROMYCIN. [Concomitant]
     Active Substance: CLARITHROMYCIN
     Dosage: 2 DOSAGE FORMS DAILY;
     Dates: start: 20150427, end: 20150504
  2. LANSOPRAZOLE. [Concomitant]
     Active Substance: LANSOPRAZOLE
     Indication: GASTROOESOPHAGEAL REFLUX PROPHYLAXIS
     Dosage: 1 DOSAGE FORMS DAILY;
     Dates: start: 20150702
  3. DOXYCYCLINE. [Concomitant]
     Active Substance: DOXYCYCLINE
     Dosage: TWO TO BE TAKEN ON THE 1ST DAY THEN ONE
     Dates: start: 20150414, end: 20150421
  4. SALBUTAMOL [Concomitant]
     Active Substance: ALBUTEROL
     Indication: DYSPNOEA
     Dosage: ONE TO TWO PUFFS UP TO FOUR TIMES A DAY WHEN REQUIRED
     Route: 055
     Dates: start: 20150501
  5. MONTELUKAST [Suspect]
     Active Substance: MONTELUKAST SODIUM
     Dates: start: 20150622
  6. BENDROFLUMETHIAZIDE [Concomitant]
     Active Substance: BENDROFLUMETHIAZIDE
     Dosage: 1 DOSAGE FORMS DAILY;
     Dates: start: 20140515
  7. PREDNISOLONE. [Concomitant]
     Active Substance: PREDNISOLONE
     Dosage: 6 DOSAGE FORMS DAILY; IN THE MORNING.
     Dates: start: 20150515, end: 20150529
  8. RAMIPRIL. [Concomitant]
     Active Substance: RAMIPRIL
     Dosage: 1 DOSAGE FORMS DAILY; AT NIGHT.
     Dates: start: 20140515
  9. AMOXICILLIN. [Concomitant]
     Active Substance: AMOXICILLIN
     Dosage: 3 DOSAGE FORMS DAILY;
     Dates: start: 20150427, end: 20150504
  10. NYSTAN [Concomitant]
     Active Substance: NYSTATIN
     Indication: FUNGAL INFECTION
     Dosage: 4 ML DAILY; IN THE MOUTH
     Dates: start: 20150605, end: 20150612
  11. CETIRIZINE [Concomitant]
     Active Substance: CETIRIZINE HYDROCHLORIDE
     Indication: HYPERSENSITIVITY
     Dosage: 1 DOSAGE FORMS DAILY;
     Dates: start: 20150702
  12. FOSTAIR [Concomitant]
     Active Substance: BECLOMETHASONE\FORMOTEROL
     Indication: PROPHYLAXIS
     Dosage: 4 DOSAGE FORMS DAILY;
     Route: 055
     Dates: start: 20150515
  13. NYSTATIN. [Concomitant]
     Active Substance: NYSTATIN
     Dosage: 4 ML DAILY;
     Dates: start: 20150615, end: 20150622

REACTIONS (3)
  - Diarrhoea [Recovering/Resolving]
  - Malaise [Recovering/Resolving]
  - Muscle spasms [Recovering/Resolving]

NARRATIVE: CASE EVENT DATE: 20150703
